FAERS Safety Report 12432183 (Version 1)
Quarter: 2016Q2

REPORT INFORMATION
  Report Type: Spontaneous
  Country: SI (occurrence: SI)
  Receive Date: 20160603
  Receipt Date: 20160603
  Transmission Date: 20160815
  Serious: Yes (Other)
  Sender: FDA-Public Use
  Company Number: SI-CIPLA LTD.-2016SI05990

PATIENT

DRUGS (4)
  1. AMIODARONE [Concomitant]
     Active Substance: AMIODARONE
     Indication: ATRIAL FIBRILLATION
     Dosage: UNK
     Route: 065
     Dates: start: 200902
  2. GEMCITABINE [Suspect]
     Active Substance: GEMCITABINE\GEMCITABINE HYDROCHLORIDE
     Indication: BLADDER CANCER
     Dosage: 1000 MG/M2, ON DAYS 1 EVERY THREE WEEKS (FOUR CYCLES)
     Route: 065
     Dates: start: 200905, end: 200908
  3. CISPLATIN. [Suspect]
     Active Substance: CISPLATIN
     Indication: BLADDER CANCER
     Dosage: 75 MG/M2, ON DAY 1 FOUR CYCLES
     Route: 065
  4. FRACTIONATED HEPARIN [Concomitant]
     Indication: PROPHYLAXIS
     Dosage: UNK
     Route: 065

REACTIONS (4)
  - Dry gangrene [Recovered/Resolved]
  - Necrosis [Recovered/Resolved]
  - Thrombocytosis [Unknown]
  - Wound infection [Recovered/Resolved]
